FAERS Safety Report 4470033-8 (Version None)
Quarter: 2004Q3

REPORT INFORMATION
  Report Type: 
  Country: None (occurrence: None)
  Receive Date: 20040920
  Receipt Date: 20040810
  Transmission Date: 20050211
  Serious: Yes (Other)
  Sender: FDA-Public Use
  Company Number: PHEH2004US08652

PATIENT
  Age: 47 Year
  Sex: Female

DRUGS (7)
  1. ZOMETA [Suspect]
     Indication: METASTASES TO BONE
     Dates: start: 20020801
  2. TAXOTERE [Concomitant]
  3. LEXAPRO [Concomitant]
  4. PERCOCET [Concomitant]
  5. TRAMADOL HCL [Concomitant]
  6. ACETAMINOPHEN [Concomitant]
  7. CORTISPORIN [Concomitant]

REACTIONS (5)
  - DENTAL CARIES [None]
  - OSTEONECROSIS [None]
  - PERIODONTAL OPERATION [None]
  - TOOTH ABSCESS [None]
  - TOOTH EXTRACTION [None]
